FAERS Safety Report 15921047 (Version 1)
Quarter: 2019Q1

REPORT INFORMATION
  Report Type: Spontaneous
  Country: US (occurrence: US)
  Receive Date: 20190205
  Receipt Date: 20190205
  Transmission Date: 20190417
  Serious: No
  Sender: FDA-Public Use
  Company Number: US-GALDERMA-US18001458

PATIENT
  Age: 68 Year
  Sex: Female

DRUGS (2)
  1. DOXYCYCLINE. [Concomitant]
     Active Substance: DOXYCYCLINE
     Dates: start: 20170815, end: 20170921
  2. SOOLANTRA [Suspect]
     Active Substance: IVERMECTIN
     Indication: ROSACEA
     Dosage: 1%
     Route: 061
     Dates: start: 20170828, end: 20170921

REACTIONS (8)
  - Oedema [Recovered/Resolved]
  - Pruritus [Recovered/Resolved]
  - Rash pustular [Recovered/Resolved]
  - Papule [Recovered/Resolved]
  - Dermatitis contact [Recovered/Resolved]
  - Rebound effect [Recovered/Resolved]
  - Erythema [Recovered/Resolved]
  - Nodule [Recovered/Resolved]

NARRATIVE: CASE EVENT DATE: 201709
